FAERS Safety Report 11462990 (Version 1)
Quarter: 2015Q3

REPORT INFORMATION
  Report Type: Spontaneous
  Country: US (occurrence: US)
  Receive Date: 20150831
  Receipt Date: 20150831
  Transmission Date: 20151125
  Serious: No
  Sender: FDA-Public Use
  Company Number: US-ELI_LILLY_AND_COMPANY-US201102001240

PATIENT
  Sex: Male

DRUGS (2)
  1. CYMBALTA [Suspect]
     Active Substance: DULOXETINE HYDROCHLORIDE
     Indication: BURNING SENSATION
  2. EXTAVIA [Concomitant]
     Active Substance: INTERFERON BETA-1B

REACTIONS (4)
  - Fatigue [Unknown]
  - Burning sensation [Unknown]
  - Formication [Unknown]
  - Off label use [Unknown]
